FAERS Safety Report 5713187-5 (Version None)
Quarter: 2008Q2

REPORT INFORMATION
  Report Type: 
  Country: None (occurrence: None)
  Receive Date: 20080422
  Receipt Date: 19870706
  Transmission Date: 20081010
  Serious: Yes (Death, Hospitalization)
  Sender: FDA-Public Use
  Company Number: US-ROCHE-8374

PATIENT
  Age: 36 Year
  Sex: Male
  Weight: 60 kg

DRUGS (1)
  1. GANCICLOVIR SODIUM [Suspect]
     Route: 042
     Dates: start: 19870703, end: 19870705

REACTIONS (3)
  - CONVULSION [None]
  - DEATH [None]
  - DEPRESSED LEVEL OF CONSCIOUSNESS [None]
